FAERS Safety Report 4639139-4 (Version None)
Quarter: 2005Q2

REPORT INFORMATION
  Report Type: 
  Country: None (occurrence: None)
  Receive Date: 20050418
  Receipt Date: 20050407
  Transmission Date: 20051028
  Serious: Yes (Other)
  Sender: FDA-Public Use
  Company Number: 2005-03-1454

PATIENT
  Age: 63 Year
  Sex: Male

DRUGS (6)
  1. BETAMETHASONE SODIUM PHOSPHATE [Suspect]
     Dosage: SEE IMAGE
     Route: 047
     Dates: start: 20031023, end: 20040301
  2. BETAMETHASONE SODIUM PHOSPHATE [Suspect]
     Dosage: SEE IMAGE
     Route: 047
     Dates: start: 20031023, end: 20040602
  3. BETAMETHASONE SODIUM PHOSPHATE [Suspect]
     Dosage: SEE IMAGE
     Route: 047
     Dates: start: 20040529, end: 20040602
  4. DICLOFENAC SODIUM [Concomitant]
  5. LEVOFLOXACIN [Concomitant]
  6. MYDRIN  P [Concomitant]

REACTIONS (8)
  - CORNEAL DEPOSITS [None]
  - CORNEAL OPACITY [None]
  - CORNEAL ULCER [None]
  - GRAFT COMPLICATION [None]
  - IMPAIRED HEALING [None]
  - IRIDOCELE [None]
  - MECHANICAL COMPLICATION OF IMPLANT [None]
  - SURGICAL PROCEDURE REPEATED [None]
